FAERS Safety Report 5152187-3 (Version None)
Quarter: 2006Q4

REPORT INFORMATION
  Report Type: 
  Country: None (occurrence: None)
  Receive Date: 20061116
  Receipt Date: 20061110
  Transmission Date: 20070319
  Serious: Yes (Death)
  Sender: FDA-Public Use
  Company Number: JP-JPN-A200604829

PATIENT
  Sex: Male

DRUGS (3)
  1. SEREVENT [Suspect]
     Indication: ASTHMA
     Dosage: 50MCG TWICE PER DAY
     Route: 055
     Dates: start: 20061012, end: 20061110
  2. FLUTIDE [Suspect]
     Indication: ASTHMA
     Dosage: 100MCG TWICE PER DAY
     Route: 055
     Dates: start: 20060121
  3. MEPTIN [Concomitant]
     Route: 055

REACTIONS (1)
  - SUDDEN DEATH [None]
